FAERS Safety Report 22102400 (Version 1)
Quarter: 2023Q1

REPORT INFORMATION
  Report Type: Report from Study
  Country: US (occurrence: US)
  Receive Date: 20230316
  Receipt Date: 20230316
  Transmission Date: 20230418
  Serious: Yes (Death, Hospitalization)
  Sender: FDA-Public Use
  Company Number: US-OTSUKA-2022_027237

PATIENT
  Sex: Male

DRUGS (2)
  1. TOLVAPTAN [Suspect]
     Active Substance: TOLVAPTAN
     Indication: Hyponatraemia
     Dosage: 30 MG, QD
     Route: 065
     Dates: start: 2021
  2. TOLVAPTAN [Suspect]
     Active Substance: TOLVAPTAN
     Indication: Hypoosmolar state
     Dosage: 15 MG, BID
     Route: 065
     Dates: start: 202206

REACTIONS (6)
  - Small cell lung cancer metastatic [Fatal]
  - Hypotension [Not Recovered/Not Resolved]
  - Dyspnoea [Not Recovered/Not Resolved]
  - Dehydration [Not Recovered/Not Resolved]
  - Product use in unapproved indication [Unknown]
  - Incorrect product administration duration [Unknown]
